FAERS Safety Report 6266857-7 (Version None)
Quarter: 2009Q3

REPORT INFORMATION
  Report Type: 
  Country: None (occurrence: None)
  Receive Date: 20090714
  Receipt Date: 20090706
  Transmission Date: 20100115
  Serious: Yes (Other)
  Sender: FDA-Public Use
  Company Number: US-ASTRAZENECA-2009UW18812

PATIENT
  Age: 47 Year
  Sex: Female
  Weight: 61.7 kg

DRUGS (5)
  1. TOPROL-XL [Suspect]
     Indication: SUPRAVENTRICULAR TACHYCARDIA
     Route: 048
     Dates: start: 20070101
  2. TOPROL-XL [Suspect]
     Indication: TACHYCARDIA
     Route: 048
     Dates: start: 20070101
  3. CATAPRES-TTS-2 [Concomitant]
     Indication: TACHYCARDIA
     Route: 061
  4. HAIR VITAMINS [Concomitant]
     Route: 061
     Dates: start: 19990101
  5. VITAMIN B COMPLEX CAP [Concomitant]
     Route: 061

REACTIONS (13)
  - ARRHYTHMIA [None]
  - CONFUSIONAL STATE [None]
  - DEPRESSION [None]
  - ILL-DEFINED DISORDER [None]
  - MEMORY IMPAIRMENT [None]
  - NERVOUS SYSTEM DISORDER [None]
  - NIGHTMARE [None]
  - OEDEMA PERIPHERAL [None]
  - SUPRAVENTRICULAR TACHYCARDIA [None]
  - TACHYCARDIA [None]
  - VENTRICULAR EXTRASYSTOLES [None]
  - WEIGHT INCREASED [None]
  - WRONG TECHNIQUE IN DRUG USAGE PROCESS [None]
